FAERS Safety Report 12086061 (Version 1)
Quarter: 2016Q1

REPORT INFORMATION
  Report Type: Report from Study
  Country: MX (occurrence: MX)
  Receive Date: 20160217
  Receipt Date: 20160217
  Transmission Date: 20160526
  Serious: Yes (Hospitalization, Disabling, Other)
  Sender: FDA-Public Use
  Company Number: MX-REGENERON PHARMACEUTICALS, INC.-2016-11417

PATIENT

DRUGS (3)
  1. EUTIROX [Concomitant]
     Active Substance: LEVOTHYROXINE SODIUM
     Indication: HYPERTHYROIDISM
     Dosage: 150 MG, QD
     Dates: start: 2014
  2. PROPAFENONE. [Concomitant]
     Active Substance: PROPAFENONE
     Indication: ARRHYTHMIA
     Dosage: 75 MG, QD
     Dates: start: 2014
  3. EYLEA [Suspect]
     Active Substance: AFLIBERCEPT
     Indication: NEOVASCULAR AGE-RELATED MACULAR DEGENERATION
     Dosage: 1 DF, Q1MON
     Route: 031
     Dates: start: 20151023, end: 20160118

REACTIONS (4)
  - Visual impairment [Not Recovered/Not Resolved]
  - Retinal haemorrhage [Recovered/Resolved]
  - Eye haemorrhage [Not Recovered/Not Resolved]
  - Retinal detachment [Not Recovered/Not Resolved]

NARRATIVE: CASE EVENT DATE: 2015
